FAERS Safety Report 7109163-0 (Version None)
Quarter: 2010Q4

REPORT INFORMATION
  Report Type: 
  Country: None (occurrence: None)
  Receive Date: 20101117
  Receipt Date: 20101116
  Transmission Date: 20110411
  Serious: Yes (Other)
  Sender: FDA-Public Use
  Company Number: SE-PFIZER INC-2010125778

PATIENT
  Age: 61 Year
  Sex: Male

DRUGS (4)
  1. LYRICA [Suspect]
     Indication: PAIN
     Dosage: 50 MG, 2X/DAY
     Route: 048
     Dates: start: 20090301
  2. LYRICA [Suspect]
     Indication: MAJOR DEPRESSION
     Dosage: 25 MG, 2X/DAY
     Dates: start: 20100801
  3. LYRICA [Suspect]
     Indication: ANXIETY
  4. VENLAFAXINE [Concomitant]
     Dosage: 150 MG, 1X/DAY
     Dates: start: 20090301

REACTIONS (2)
  - DYSARTHRIA [None]
  - DYSPHEMIA [None]
